FAERS Safety Report 19294765 (Version 3)
Quarter: 2021Q3

REPORT INFORMATION
  Report Type: Report from Study
  Country: US (occurrence: US)
  Receive Date: 20210524
  Receipt Date: 20210922
  Transmission Date: 20211014
  Serious: Yes (Other)
  Sender: FDA-Public Use
  Company Number: US-TAKEDA-US202028893

PATIENT
  Age: 20 Year
  Sex: Male

DRUGS (1)
  1. CUVITRU [Suspect]
     Active Substance: HUMAN IMMUNOGLOBULIN G
     Indication: PRIMARY IMMUNODEFICIENCY SYNDROME
     Dosage: UNK, Q2WEEKS
     Route: 065

REACTIONS (7)
  - Infusion related reaction [Unknown]
  - Cholecystectomy [Unknown]
  - Deafness [Unknown]
  - Headache [Unknown]
  - Hepatic function abnormal [Unknown]
  - Fatigue [Unknown]
  - Gallbladder disorder [Unknown]

NARRATIVE: CASE EVENT DATE: 20200903
